FAERS Safety Report 10178695 (Version 1)
Quarter: 2014Q2

REPORT INFORMATION
  Report Type: Spontaneous
  Country: US (occurrence: None)
  Receive Date: 20140516
  Receipt Date: 20140516
  Transmission Date: 20141212
  Serious: Yes (Disabling)
  Sender: FDA-Public Use
  Company Number: None

PATIENT
  Age: 68 Year
  Sex: Female
  Weight: 70.31 kg

DRUGS (8)
  1. PROLIA (DENOSUMAB) INJECTION AMGEN [Suspect]
     Indication: OSTEOPOROSIS
     Dosage: 1 ML PFS
     Dates: start: 201308
  2. MULTI VITAMIN [Concomitant]
  3. FISH OIL [Concomitant]
  4. CALCIUIM [Concomitant]
  5. B COMPLEX [Concomitant]
  6. BABY ASPIRIN [Concomitant]
  7. MAGNESIUM [Concomitant]
  8. UBIQUINOL [Concomitant]

REACTIONS (2)
  - Stomatitis [None]
  - Gingival inflammation [None]
